FAERS Safety Report 5386780-X (Version None)
Quarter: 2007Q3

REPORT INFORMATION
  Report Type: 
  Country: None (occurrence: None)
  Receive Date: 20070713
  Receipt Date: 20070702
  Transmission Date: 20080115
  Serious: Yes (Hospitalization, Other)
  Sender: FDA-Public Use
  Company Number: US-PFIZER INC-2006111047

PATIENT
  Sex: Male
  Weight: 95.3 kg

DRUGS (5)
  1. CELEBREX [Suspect]
     Indication: ARTHRITIS
     Dates: start: 19990101, end: 19991101
  2. VIOXX [Suspect]
     Indication: ARTHRITIS
     Dosage: FREQ:FREQUENCY: 1-2X
     Route: 048
  3. METOPROLOL SUCCINATE [Concomitant]
  4. COLCHICINE [Concomitant]
  5. LIPITOR [Concomitant]
     Dates: start: 20011012, end: 20051201

REACTIONS (3)
  - CARDIOVASCULAR DISORDER [None]
  - CORONARY ARTERY DISEASE [None]
  - MYOCARDIAL INFARCTION [None]
